FAERS Safety Report 5479471-8 (Version None)
Quarter: 2007Q4

REPORT INFORMATION
  Report Type: 
  Country: None (occurrence: None)
  Receive Date: 20071008
  Receipt Date: 20070924
  Transmission Date: 20080405
  Serious: Yes (Other)
  Sender: FDA-Public Use
  Company Number: DK-ASTRAZENECA-2007SE05281

PATIENT

DRUGS (1)
  1. NAROPIN [Suspect]

REACTIONS (2)
  - NERVE INJURY [None]
  - PARALYSIS [None]
